FAERS Safety Report 8238943-3 (Version None)
Quarter: 2012Q1

REPORT INFORMATION
  Report Type: 
  Country: None (occurrence: None)
  Receive Date: 20120327
  Receipt Date: 20120314
  Transmission Date: 20120608
  Serious: Yes (Hospitalization)
  Sender: FDA-Public Use
  Company Number: FR-ROCHE-747145

PATIENT
  Sex: Female
  Weight: 68 kg

DRUGS (18)
  1. METHOTREXATE [Concomitant]
     Indication: RHEUMATOID ARTHRITIS
     Dosage: FREQUENCY:DAILY
     Route: 048
  2. PYOSTACINE [Concomitant]
  3. ACTEMRA [Suspect]
     Indication: RHEUMATOID ARTHRITIS
     Route: 042
     Dates: start: 20100127, end: 20100812
  4. METHOTREXATE [Concomitant]
     Route: 048
  5. FOLIC ACID [Concomitant]
     Indication: RHEUMATOID ARTHRITIS
     Route: 048
  6. CALCIUM CARBONATE [Concomitant]
     Indication: OSTEOPOROSIS
     Route: 048
  7. SILVER SULFADIAZINE [Concomitant]
  8. CARDIOCOR [Concomitant]
     Indication: HYPERTENSION
     Dosage: FREQUENCY:DAILY
     Route: 048
  9. PREDNISONE TAB [Concomitant]
     Dosage: FREQUENCY: DAILY
     Route: 048
  10. VALSARTAN [Concomitant]
     Indication: HYPERTENSION
     Route: 048
  11. AMOXICILLIN [Concomitant]
  12. PREDNISONE TAB [Concomitant]
     Indication: RHEUMATOID ARTHRITIS
     Dosage: FREQUENCY: DAILY
     Route: 048
  13. ALDACTONE [Concomitant]
     Indication: HYPERTENSION
     Route: 048
  14. ACETAMINOPHEN AND CODEINE PHOSPHATE [Concomitant]
     Indication: RHEUMATOID ARTHRITIS
     Dosage: FREQUENCY:DAILY
     Route: 048
  15. DERMOVAL (FRANCE) [Concomitant]
  16. SINTROM [Concomitant]
     Route: 048
  17. SINTROM [Concomitant]
     Indication: ARRHYTHMIA
     Route: 048
  18. FORTEO [Concomitant]
     Indication: OSTEOPOROSIS
     Dosage: FREQUENCY:DAILY
     Route: 048

REACTIONS (1)
  - PYODERMA GANGRENOSUM [None]
